FAERS Safety Report 8721643 (Version 2)
Quarter: 2013Q1

REPORT INFORMATION
  Report Type: Spontaneous
  Country: US (occurrence: US)
  Receive Date: 20120814
  Receipt Date: 20130319
  Transmission Date: 20140127
  Serious: Yes (Hospitalization, Other)
  Sender: FDA-Public Use
  Company Number: US-BAYER-2012-078685

PATIENT
  Age: 52 Year
  Sex: Female

DRUGS (6)
  1. YAZ [Suspect]
  2. NEXIUM [Concomitant]
  3. CLARITIN [Concomitant]
  4. AMBIEN [Concomitant]
  5. EFFEXOR [Concomitant]
  6. RHINOCORT [Concomitant]

REACTIONS (2)
  - Cerebellar infarction [None]
  - Cholecystitis chronic [None]
